FAERS Safety Report 5567890-0 (Version None)
Quarter: 2007Q4

REPORT INFORMATION
  Report Type: 
  Country: None (occurrence: None)
  Receive Date: 20071218
  Receipt Date: 20071218
  Transmission Date: 20080405
  Serious: No
  Sender: FDA-Public Use
  Company Number: None

PATIENT
  Age: 50 Year
  Sex: Male
  Weight: 99.7913 kg

DRUGS (8)
  1. LAMOTRIGINE [Suspect]
     Dosage: 200MG BID PO
     Route: 048
  2. HALOPERIDOL [Suspect]
     Dosage: 5MG PO
     Route: 048
  3. KEPPRA [Concomitant]
  4. OLANZAPINE [Concomitant]
  5. DSS [Concomitant]
  6. ASPIRIN [Concomitant]
  7. LANTUS [Concomitant]
  8. LISPRO [Concomitant]

REACTIONS (3)
  - PLATELET COUNT DECREASED [None]
  - RED BLOOD CELL COUNT DECREASED [None]
  - WHITE BLOOD CELL COUNT DECREASED [None]
